FAERS Safety Report 9304380 (Version 3)
Quarter: 2013Q2

REPORT INFORMATION
  Report Type: Spontaneous
  Country: US (occurrence: US)
  Receive Date: 20130522
  Receipt Date: 20130604
  Transmission Date: 20140414
  Serious: Yes (Hospitalization)
  Sender: FDA-Public Use
  Company Number: US-GILEAD-2013-0075402

PATIENT
  Sex: Male

DRUGS (2)
  1. LETAIRIS [Suspect]
     Indication: PULMONARY HYPERTENSION
     Dosage: 5 MG, QD
     Dates: start: 20130419
  2. LETAIRIS [Suspect]
     Indication: PULMONARY EMBOLISM

REACTIONS (5)
  - Tuberculosis [Unknown]
  - Dyspnoea [Unknown]
  - Oedema [Unknown]
  - Rhinorrhoea [Unknown]
  - Sinus disorder [Unknown]
